FAERS Safety Report 17233025 (Version 1)
Quarter: 2020Q1

REPORT INFORMATION
  Report Type: Spontaneous
  Country: DE (occurrence: DE)
  Receive Date: 20200104
  Receipt Date: 20200104
  Transmission Date: 20200409
  Serious: Yes (Hospitalization)
  Sender: FDA-Public Use
  Company Number: DE-TEVA-2019-DE-1161250

PATIENT
  Age: 98 Year
  Sex: Female

DRUGS (13)
  1. PANTOZOL [Concomitant]
     Active Substance: PANTOPRAZOLE SODIUM
     Dosage: 40 MG, 1-0-0-0
  2. KALIUM [Concomitant]
     Active Substance: POTASSIUM CHLORIDE
     Dosage: NK MG/2TAG, 1-0-0-0; 1 DF
  3. TORASEMID [Suspect]
     Active Substance: TORSEMIDE
     Dosage: 10 MG, 1-0-0-0
  4. ERYFER 100 (FERROUS SULFATE) [Suspect]
     Active Substance: FERROUS SULFATE
     Dosage: 100 MG, 1-0-0-0
  5. SALBUTAMOL AL FERTIGINHALAT [Concomitant]
     Dosage: NK MG, IF NECESSARY
  6. PREGABALIN. [Suspect]
     Active Substance: PREGABALIN
     Dosage: 25 MG, 0-0-1-0
  7. XIPAMID [Suspect]
     Active Substance: XIPAMIDE
     Dosage: 10 MG, 1-0-0-0
  8. ALLOPURINOL. [Concomitant]
     Active Substance: ALLOPURINOL
     Dosage: 100 MG, 1-0-0-0
  9. METOPROLOL. [Concomitant]
     Active Substance: METOPROLOL
     Dosage: 47.5 MG, 1-0-0.5-0
  10. MELPERON [Suspect]
     Active Substance: MELPERONE
     Dosage: 5 ML, IF NECESSARY
  11. RIVAROXABAN [Suspect]
     Active Substance: RIVAROXABAN
     Dosage: 10 MG, 1-0-0-0
  12. ACC 600 [Concomitant]
     Dosage: 600 MG, 1-0-0-0
  13. MIRTAZAPIN [Concomitant]
     Active Substance: MIRTAZAPINE
     Dosage: 15 MG, 0-0-1-0

REACTIONS (4)
  - Eructation [Unknown]
  - Abdominal distension [Unknown]
  - Constipation [Unknown]
  - Flatulence [Unknown]
